FAERS Safety Report 7156664-5 (Version None)
Quarter: 2010Q4

REPORT INFORMATION
  Report Type: 
  Country: None (occurrence: None)
  Receive Date: 20101214
  Receipt Date: 20100322
  Transmission Date: 20110411
  Serious: No
  Sender: FDA-Public Use
  Company Number: US-ASTRAZENECA-2009SE28197

PATIENT
  Age: 57 Year
  Sex: Male

DRUGS (3)
  1. CRESTOR [Suspect]
     Route: 048
     Dates: start: 20091013, end: 20090101
  2. CRESTOR [Suspect]
     Route: 048
     Dates: start: 20091113, end: 20091113
  3. ACIPHEX [Suspect]
     Indication: GASTROOESOPHAGEAL REFLUX DISEASE
     Route: 065

REACTIONS (4)
  - DYSPEPSIA [None]
  - HICCUPS [None]
  - MYALGIA [None]
  - WRONG DRUG ADMINISTERED [None]
